FAERS Safety Report 5080752-0 (Version None)
Quarter: 2006Q3

REPORT INFORMATION
  Report Type: 
  Country: None (occurrence: None)
  Receive Date: 20060809
  Receipt Date: 20060724
  Transmission Date: 20061208
  Serious: Yes (Hospitalization, Other)
  Sender: FDA-Public Use
  Company Number: 2006AL001967

PATIENT
  Age: 68 Year
  Sex: Male

DRUGS (7)
  1. BACTRIM [Suspect]
     Dosage: 200 MG; QD; PO
     Route: 048
     Dates: start: 20060127, end: 20060130
  2. ATORVASTATIN CALCIUM [Concomitant]
  3. SINEMET [Concomitant]
  4. ASPIRIN [Concomitant]
  5. AMLODIPINE [Concomitant]
  6. ATENOLOL [Concomitant]
  7. PRAMIPEXOLE DIHYDROCHLORIDE [Concomitant]

REACTIONS (2)
  - CHOLESTASIS [None]
  - JAUNDICE [None]
